FAERS Safety Report 21564093 (Version 2)
Quarter: 2023Q1

REPORT INFORMATION
  Report Type: Spontaneous
  Country: IT (occurrence: IT)
  Receive Date: 20221108
  Receipt Date: 20230118
  Transmission Date: 20230418
  Serious: Yes (Other)
  Sender: FDA-Public Use
  Company Number: IT-CELLTRION INC.-2022IT018395

PATIENT

DRUGS (1)
  1. RITUXIMAB [Suspect]
     Active Substance: RITUXIMAB
     Indication: Sjogren^s syndrome
     Dosage: 1000 MG, ON DAY 1 AND DAY 15 TO COMPLETE A SINGLE COURSE OF THERAPY

REACTIONS (4)
  - Hypogammaglobulinaemia [Unknown]
  - Pyelonephritis [Unknown]
  - Product use in unapproved indication [Unknown]
  - Off label use [Unknown]
